FAERS Safety Report 6866151-7 (Version None)
Quarter: 2010Q3

REPORT INFORMATION
  Report Type: 
  Country: None (occurrence: None)
  Receive Date: 20100707
  Receipt Date: 20100322
  Transmission Date: 20110219
  Serious: No
  Sender: FDA-Public Use
  Company Number: 201003028

PATIENT
  Age: 65 Year
  Sex: Female
  Weight: 81.6475 kg

DRUGS (9)
  1. XIAFLEX [Suspect]
     Indication: DUPUYTREN'S CONTRACTURE
     Dosage: INTRALESIONAL
     Route: 026
     Dates: start: 20100316, end: 20100316
  2. LIDOCAINE [Suspect]
     Indication: LOCAL ANAESTHESIA
     Dosage: INJECTION
     Route: 042
     Dates: start: 20100317, end: 20100317
  3. LEXAPRO (ESCITALOPRAM OXALATE) (ESCITALOPRAM OXALATE) [Concomitant]
  4. PROTONIX [Concomitant]
  5. LEVOTHYROXINE (LEVOTHYROXINE) (LEVOTHYROXINE) [Concomitant]
  6. CALCIUM (CALCIUM) (CALCIUM) [Concomitant]
  7. ASPIRIN [Concomitant]
  8. VITAMIN D (ERGOCALCIFEROL) (ERGOCALCIFEROL) [Concomitant]
  9. MARCAINE [Suspect]
     Indication: LOCAL ANAESTHESIA
     Dates: start: 20100317, end: 20100317

REACTIONS (4)
  - CONTUSION [None]
  - OEDEMA PERIPHERAL [None]
  - PETECHIAE [None]
  - TENDERNESS [None]
